FAERS Safety Report 5426161-3 (Version None)
Quarter: 2007Q3

REPORT INFORMATION
  Report Type: 
  Country: None (occurrence: None)
  Receive Date: 20070827
  Receipt Date: 20070809
  Transmission Date: 20080115
  Serious: No
  Sender: FDA-Public Use
  Company Number: BR-AVENTIS-200714421GDDC

PATIENT
  Age: 33 Year
  Sex: Female
  Weight: 47 kg

DRUGS (4)
  1. ARAVA [Suspect]
     Indication: RHEUMATOID ARTHRITIS
     Dosage: DOSE: UNK
     Dates: start: 20060401, end: 20070401
  2. PREDNISONE TAB [Suspect]
     Indication: RHEUMATOID ARTHRITIS
     Dosage: DOSE: 1 TABLET
     Route: 048
     Dates: start: 20030101, end: 20070401
  3. FOLIC ACID [Suspect]
     Dosage: DOSE: UNK
  4. POLYVITAMIN                        /01103301/ [Suspect]
     Dosage: DOSE: UNK

REACTIONS (3)
  - ALOPECIA [None]
  - DRUG EXPOSURE DURING PREGNANCY [None]
  - PREGNANCY [None]
